FAERS Safety Report 21214685 (Version 2)
Quarter: 2022Q4

REPORT INFORMATION
  Report Type: Spontaneous
  Country: ZA (occurrence: ZA)
  Receive Date: 20220816
  Receipt Date: 20221024
  Transmission Date: 20230112
  Serious: Yes (Death)
  Sender: FDA-Public Use
  Company Number: ZA-ROCHE-3156321

PATIENT
  Age: 87 Year
  Sex: Female

DRUGS (2)
  1. MIRCERA [Suspect]
     Active Substance: METHOXY POLYETHYLENE GLYCOL-EPOETIN BETA
     Indication: End stage renal disease
     Route: 042
     Dates: start: 201708
  2. FERROUS BISGLYCINATE\FOLIC ACID [Concomitant]
     Active Substance: FERROUS BISGLYCINATE\FOLIC ACID
     Route: 042

REACTIONS (1)
  - Death [Fatal]
